FAERS Safety Report 8953002 (Version 5)
Quarter: 2013Q1

REPORT INFORMATION
  Report Type: Report from Study
  Country: US (occurrence: US)
  Receive Date: 20121205
  Receipt Date: 20130116
  Transmission Date: 20140127
  Serious: Yes (Hospitalization)
  Sender: FDA-Public Use
  Company Number: PHHO2012US017353

PATIENT
  Age: 54 Year
  Sex: Female
  Weight: 65 kg

DRUGS (17)
  1. AFINITOR [Suspect]
     Indication: MENINGIOMA
     Dosage: 10 MG, UNK
     Route: 048
     Dates: start: 20120727, end: 20121123
  2. AVASTIN [Suspect]
     Indication: MENINGIOMA
     Dosage: 800 MG, UNK
     Route: 042
     Dates: start: 20120727, end: 20121004
  3. PROMETHAZINE [Concomitant]
     Indication: NAUSEA
     Dosage: 26 MG, Q6W PRN
     Route: 048
  4. ASPIRIN [Concomitant]
     Indication: PROPHYLAXIS
     Dosage: 81 MG, QD
     Route: 048
     Dates: start: 20110519
  5. FLONASE [Concomitant]
     Dosage: 50 UG, PRN
     Dates: start: 20110614
  6. COMBIVENT [Concomitant]
     Indication: DYSPNOEA
     Dosage: UNK, PRN
     Dates: start: 20110619
  7. PULMICORT [Concomitant]
     Dosage: UNK, PRN
     Dates: start: 20110727
  8. CHOLECALCIFEROL [Concomitant]
     Indication: SUPPLEMENTATION THERAPY
     Dosage: 50000 U, 2X MONTHLY
     Dates: start: 20110519
  9. ALPRAZOLAM [Concomitant]
     Indication: ANXIETY
     Dosage: 1 MG, TID
     Dates: start: 20110519
  10. ENDOCET [Concomitant]
     Dosage: 10/325 Q4
     Dates: start: 20110519
  11. MORPHINE [Concomitant]
     Indication: PAIN
     Dosage: 230 MG, UNK
     Dates: start: 20120810
  12. CIPROFLOXACIN [Concomitant]
     Indication: URINARY TRACT INFECTION
     Dosage: 500 MG, BID
     Dates: start: 20121119
  13. LASIX [Concomitant]
     Indication: OEDEMA
     Dosage: 40 MG, QD
     Dates: start: 20120824
  14. TEMAZEPAM [Concomitant]
     Indication: SLEEP DISORDER
     Dosage: 30 MG, QHS PRN
     Dates: start: 20120125
  15. PRILOSEC [Concomitant]
     Indication: DYSPEPSIA
     Dosage: 20 MG, QD
  16. DILANTIN                                /AUS/ [Concomitant]
     Indication: CONVULSION
     Dosage: UNK, QD
     Dates: start: 20110519
  17. LISINOPRIL [Concomitant]
     Indication: HYPERTENSION
     Dosage: 20 MG, QD

REACTIONS (1)
  - Thrombotic microangiopathy [Not Recovered/Not Resolved]
